FAERS Safety Report 8775401 (Version 1)
Quarter: 2012Q4

REPORT INFORMATION
  Report Type: Report from Study
  Country: US (occurrence: US)
  Receive Date: 20120910
  Receipt Date: 20120910
  Transmission Date: 20130627
  Serious: Yes (Other)
  Sender: FDA-Public Use
  Company Number: US-ROCHE-1084627

PATIENT
  Sex: Female
  Weight: 90.8 kg

DRUGS (2)
  1. XELODA [Suspect]
     Indication: BREAST CANCER METASTATIC
     Route: 048
     Dates: start: 20120409
  2. XELODA [Suspect]
     Route: 048
     Dates: start: 2012, end: 20120824

REACTIONS (2)
  - Joint swelling [Not Recovered/Not Resolved]
  - Malignant neoplasm progression [Unknown]
